FAERS Safety Report 8923145 (Version 1)
Quarter: 2012Q4

REPORT INFORMATION
  Report Type: 
  Country: CA (occurrence: CA)
  Receive Date: 20121123
  Receipt Date: 20121123
  Transmission Date: 20130627
  Serious: Yes (Hospitalization)
  Sender: FDA-Public Use
  Company Number: CA-ROCHE-1159391

PATIENT
  Sex: Male

DRUGS (2)
  1. PEGASYS [Suspect]
     Indication: HEPATITIS C
     Route: 050
  2. RIBAVIRIN [Suspect]
     Indication: HEPATITIS C
     Route: 050

REACTIONS (1)
  - Intestinal obstruction [Unknown]
